FAERS Safety Report 19926458 (Version 1)
Quarter: 2021Q4

REPORT INFORMATION
  Report Type: Report from Study
  Country: IL (occurrence: IL)
  Receive Date: 20211006
  Receipt Date: 20211006
  Transmission Date: 20220303
  Serious: Yes (Other)
  Sender: FDA-Public Use
  Company Number: IL-TEVA-2021-IL-1961038

PATIENT
  Age: 7 Month
  Sex: Female

DRUGS (1)
  1. PROPRANOLOL [Suspect]
     Active Substance: PROPRANOLOL HYDROCHLORIDE
     Indication: Infantile haemangioma
     Dosage: 1 MG/KG DAILY;
     Route: 048

REACTIONS (2)
  - Seizure [Unknown]
  - Hypoglycaemia [Unknown]
